FAERS Safety Report 8790276 (Version 2)
Quarter: 2012Q4

REPORT INFORMATION
  Report Type: 
  Country: ES (occurrence: ES)
  Receive Date: 20120914
  Receipt Date: 20121010
  Transmission Date: 20130627
  Serious: Yes (Other)
  Sender: FDA-Public Use
  Company Number: ES-ELI_LILLY_AND_COMPANY-ES201209002050

PATIENT
  Age: 63 Year
  Sex: Male

DRUGS (3)
  1. ZYPREXA [Suspect]
     Indication: SCHIZOPHRENIA, PARANOID TYPE
     Dosage: 5 mg, UNK
  2. ZYPREXA [Suspect]
     Dosage: 1 DF, UNK
     Dates: start: 1995
  3. ZYPREXA [Suspect]
     Dosage: 20 mg, UNK

REACTIONS (3)
  - Parkinsonism [Unknown]
  - Tardive dyskinesia [Unknown]
  - Dyskinesia [Unknown]
